FAERS Safety Report 20170862 (Version 3)
Quarter: 2022Q1

REPORT INFORMATION
  Report Type: Report from Study
  Country: US (occurrence: US)
  Receive Date: 20211210
  Receipt Date: 20220308
  Transmission Date: 20220423
  Serious: Yes (Hospitalization, Other)
  Sender: FDA-Public Use
  Company Number: US-ABBVIE-21K-163-4192390-00

PATIENT
  Sex: Female

DRUGS (3)
  1. SKYRIZI [Suspect]
     Active Substance: RISANKIZUMAB-RZAA
     Indication: Psoriasis
     Route: 058
  2. MODERNA COVID-19 VACCINE [Suspect]
     Active Substance: ELASOMERAN
     Indication: COVID-19 immunisation
     Route: 030
     Dates: start: 20210304, end: 20210304
  3. MODERNA COVID-19 VACCINE [Suspect]
     Active Substance: ELASOMERAN
     Route: 030
     Dates: start: 20210401, end: 20210401

REACTIONS (8)
  - Hypertension [Not Recovered/Not Resolved]
  - Optic ischaemic neuropathy [Unknown]
  - Visual impairment [Unknown]
  - Blood glucose increased [Unknown]
  - Psoriasis [Unknown]
  - Fatigue [Unknown]
  - Pain [Unknown]
  - Hunger [Unknown]

NARRATIVE: CASE EVENT DATE: 20210101
